FAERS Safety Report 14007818 (Version 2)
Quarter: 2017Q4

REPORT INFORMATION
  Report Type: Spontaneous
  Country: DK (occurrence: DK)
  Receive Date: 20170925
  Receipt Date: 20171011
  Transmission Date: 20180321
  Serious: Yes (Hospitalization, Other)
  Sender: FDA-Public Use
  Company Number: DK-PFIZER INC-2017401754

PATIENT
  Age: 46 Year
  Sex: Female

DRUGS (2)
  1. DOCETAXEL ACTAVIS [Suspect]
     Active Substance: DOCETAXEL
     Indication: INTRADUCTAL PROLIFERATIVE BREAST LESION
     Dosage: 166 MG, UNK
     Route: 042
     Dates: start: 20140326, end: 20140326
  2. DOCETAXEL ACTAVIS [Suspect]
     Active Substance: DOCETAXEL
     Dosage: UNK
     Dates: end: 20140716

REACTIONS (20)
  - Neutropenia [Recovered/Resolved]
  - Face oedema [Unknown]
  - Malaise [Unknown]
  - Nervous system disorder [Unknown]
  - Nerve injury [Recovering/Resolving]
  - Oral fungal infection [Recovering/Resolving]
  - Fatigue [Unknown]
  - Body temperature increased [Unknown]
  - Brain injury [Unknown]
  - Pyrexia [Recovered/Resolved]
  - Memory impairment [Unknown]
  - Leukopenia [Recovered/Resolved]
  - Lymphoedema [Not Recovered/Not Resolved]
  - Arthralgia [Recovering/Resolving]
  - Cognitive disorder [Unknown]
  - Dizziness [Unknown]
  - Accidental overdose [Recovered/Resolved with Sequelae]
  - Pain in extremity [Recovering/Resolving]
  - General physical health deterioration [Recovering/Resolving]
  - Diarrhoea [Unknown]

NARRATIVE: CASE EVENT DATE: 20140326
